FAERS Safety Report 7033898-1 (Version None)
Quarter: 2010Q4

REPORT INFORMATION
  Report Type: 
  Country: None (occurrence: None)
  Receive Date: 20101007
  Receipt Date: 20100929
  Transmission Date: 20110411
  Serious: Yes (Other)
  Sender: FDA-Public Use
  Company Number: US-AMGEN-QUU442012

PATIENT
  Sex: Male

DRUGS (2)
  1. NPLATE [Suspect]
     Indication: IDIOPATHIC THROMBOCYTOPENIC PURPURA
     Dates: start: 20100326, end: 20100923
  2. IMMU-G [Concomitant]
     Route: 042
     Dates: start: 20040831, end: 20100308

REACTIONS (1)
  - THERAPEUTIC RESPONSE DECREASED [None]
